FAERS Safety Report 4373270-6 (Version None)
Quarter: 2004Q2

REPORT INFORMATION
  Report Type: 
  Country: None (occurrence: None)
  Receive Date: 20040603
  Receipt Date: 20040528
  Transmission Date: 20050107
  Serious: Yes (Death)
  Sender: FDA-Public Use
  Company Number: MK200405-0112-2

PATIENT
  Age: 42 Year
  Sex: Male

DRUGS (3)
  1. METHADOSE [Suspect]
     Dates: start: 20030615
  2. COCAINE [Concomitant]
  3. DIAZEPAM [Concomitant]

REACTIONS (3)
  - ACCIDENT [None]
  - BLOOD ALCOHOL INCREASED [None]
  - DRUG SCREEN POSITIVE [None]
